FAERS Safety Report 5426919-0 (Version None)
Quarter: 2007Q3

REPORT INFORMATION
  Report Type: 
  Country: None (occurrence: None)
  Receive Date: 20070731
  Receipt Date: 20070418
  Transmission Date: 20080115
  Serious: No
  Sender: FDA-Public Use
  Company Number: US200704004281

PATIENT
  Age: 68 Year
  Sex: Female

DRUGS (11)
  1. BYETTA [Suspect]
     Dosage: 10 UG; BEFORE EACH MEAL
  2. EXENATIDE 5MCG PEN, DISPOSABLE DEVICE (EXENATIDE PEN (5MCG)) PEN, DISP [Concomitant]
  3. CYMBALTA [Concomitant]
  4. PROZAC [Concomitant]
  5. ELAVIL [Concomitant]
  6. BUSPAR [Concomitant]
  7. DIAMOX /CAN/(ACETAZOLAMIDE) [Concomitant]
  8. METFORMIN (METFORMIN) TABLET [Concomitant]
  9. DIOVAN (HYDROCHLOROTHIAZIDE, VALSARTAN) [Concomitant]
  10. NOVOLOG [Concomitant]
  11. LANTUS [Concomitant]

REACTIONS (2)
  - INSOMNIA [None]
  - STOMACH DISCOMFORT [None]
